FAERS Safety Report 18968020 (Version 1)
Quarter: 2021Q1

REPORT INFORMATION
  Report Type: Spontaneous
  Country: US (occurrence: US)
  Receive Date: 20210304
  Receipt Date: 20210304
  Transmission Date: 20210420
  Serious: Yes (Hospitalization)
  Sender: FDA-Public Use
  Company Number: US-UNICHEM PHARMACEUTICALS (USA) INC-UCM202102-000188

PATIENT

DRUGS (4)
  1. BACLOFEN. [Suspect]
     Active Substance: BACLOFEN
     Indication: WITHDRAWAL SYNDROME
     Dosage: 0.125 MG PER KG PER DOSE EVERY 6 HOURS BEGINNING SEVERAL HOURS AFTER BIRTH
  2. BACLOFEN. [Suspect]
     Active Substance: BACLOFEN
     Dosage: DOSE WAS REDUCED TO 0.125 MG PER KG PER DOSE EVERY EIGHT HOURS ON DAYS 5?7 OF LIFE
  3. BACLOFEN. [Suspect]
     Active Substance: BACLOFEN
     Dosage: 0.125 MG PER KG PER DOSE DAILY ON DAYS 11?13 OF LIFE BEFORE DISCONTINUATION.
  4. BACLOFEN. [Suspect]
     Active Substance: BACLOFEN
     Dosage: 0.125 MG PER KG PER DOSE EVERY TWELVE HOURS ON DAYS 8?10 OF LIFE

REACTIONS (8)
  - Regurgitation [Recovered/Resolved]
  - Feeling jittery [Recovered/Resolved]
  - Pyrexia [Recovered/Resolved]
  - Feeding disorder [Recovered/Resolved]
  - Insomnia [Recovered/Resolved]
  - Sneezing [Recovered/Resolved]
  - Withdrawal syndrome [Recovered/Resolved]
  - Tremor [Recovered/Resolved]
